FAERS Safety Report 4714843-8 (Version None)
Quarter: 2005Q3

REPORT INFORMATION
  Report Type: 
  Country: None (occurrence: None)
  Receive Date: 20050715
  Receipt Date: 20050711
  Transmission Date: 20060218
  Serious: Yes (Hospitalization)
  Sender: FDA-Public Use
  Company Number: US-SOLVAY-00305002231

PATIENT
  Age: 13 Year
  Sex: Male

DRUGS (6)
  1. GUANFACINE HCL [Concomitant]
     Indication: ILL-DEFINED DISORDER
     Dosage: DAILY DOSE: 2 MILLIGRAM(S)
     Route: 065
  2. FLUVOXAMINE [Suspect]
     Indication: ILL-DEFINED DISORDER
     Dosage: DAILY DOSE:  UNKNOWN
     Route: 065
  3. FLUVOXAMINE [Suspect]
     Dosage: DAILY DOSE: 300 MILLIGRAM(S)
     Route: 065
  4. METHYLPHENIDATE HCL [Suspect]
     Indication: ILL-DEFINED DISORDER
     Dosage: DAILY DOSE: 36 MILLIGRAM(S)
     Route: 065
  5. METHYLPHENIDATE HCL [Suspect]
     Dosage: DAILY DOSE: 54 MILLIGRAM(S)
     Route: 065
  6. RISPERIDONE [Suspect]
     Indication: AGGRESSION
     Dosage: DAILY DOSE: 1.5 MILLIGRAM(S)
     Route: 065

REACTIONS (4)
  - DRUG DOSE OMISSION [None]
  - DYSTONIA [None]
  - EXTRAPYRAMIDAL DISORDER [None]
  - NEUROTRANSMITTER LEVEL ALTERED [None]
